FAERS Safety Report 5237191-9 (Version None)
Quarter: 2007Q1

REPORT INFORMATION
  Report Type: 
  Country: None (occurrence: None)
  Receive Date: 20061208
  Receipt Date: 20050321
  Transmission Date: 20070707
  Serious: Yes (Other)
  Sender: FDA-Public Use
  Company Number: 2005UW04467

PATIENT
  Age: 80 Year
  Sex: Female
  Weight: 57.152 kg

DRUGS (5)
  1. CRESTOR [Suspect]
     Indication: HYPERCHOLESTEROLAEMIA
     Dosage: 10 MG QD PO
     Route: 048
  2. SYNTHROID [Concomitant]
  3. BEXTRA [Concomitant]
  4. PLAVIX [Concomitant]
  5. ASPIRIN [Concomitant]

REACTIONS (3)
  - FALL [None]
  - INJURY [None]
  - LOSS OF CONSCIOUSNESS [None]
